FAERS Safety Report 18131394 (Version 1)
Quarter: 2020Q3

REPORT INFORMATION
  Report Type: Report from Study
  Country: US (occurrence: US)
  Receive Date: 20200810
  Receipt Date: 20200810
  Transmission Date: 20201103
  Serious: Yes (Other)
  Sender: FDA-Public Use
  Company Number: US-THERAPEUTICSMD-2020TMD03223

PATIENT
  Age: 74 Year
  Sex: Female
  Weight: 56.24 kg

DRUGS (2)
  1. IMVEXXY [Suspect]
     Active Substance: ESTRADIOL
     Indication: VULVOVAGINAL DRYNESS
     Dosage: 10 ?G, 2X/WEEK, BEFORE BED
     Route: 067
     Dates: start: 20181115
  2. EVENITY [Concomitant]
     Active Substance: ROMOSOZUMAB-AQQG
     Dosage: UNK
     Dates: start: 2020

REACTIONS (8)
  - Cholelithiasis [Unknown]
  - Sluggishness [Not Recovered/Not Resolved]
  - Pain in extremity [Not Recovered/Not Resolved]
  - Limb discomfort [Not Recovered/Not Resolved]
  - Product dose omission issue [Unknown]
  - Obstructive pancreatitis [Unknown]
  - Off label use [Not Recovered/Not Resolved]
  - Fatigue [Not Recovered/Not Resolved]

NARRATIVE: CASE EVENT DATE: 20181115
